FAERS Safety Report 5821115-7 (Version None)
Quarter: 2008Q3

REPORT INFORMATION
  Report Type: 
  Country: None (occurrence: None)
  Receive Date: 20080722
  Receipt Date: 20080710
  Transmission Date: 20090109
  Serious: Yes (Hospitalization, Other)
  Sender: FDA-Public Use
  Company Number: IDA-00101

PATIENT
  Age: 27 Year
  Sex: Female

DRUGS (2)
  1. PROPRANOLOL        (UNK STRENGTH, UNK MFR) [Suspect]
     Indication: PHAEOCHROMOCYTOMA
  2. PHENOXYBENZAMINE [Concomitant]

REACTIONS (3)
  - ADRENALECTOMY [None]
  - CAESAREAN SECTION [None]
  - DRUG EXPOSURE DURING PREGNANCY [None]
